FAERS Safety Report 16719196 (Version 1)
Quarter: 2019Q3

REPORT INFORMATION
  Report Type: Report from Study
  Country: US (occurrence: US)
  Receive Date: 20190820
  Receipt Date: 20190820
  Transmission Date: 20191005
  Serious: Yes (Other)
  Sender: FDA-Public Use
  Company Number: US-ENDO PHARMACEUTICALS INC-2019-107261

PATIENT
  Age: 61 Year
  Sex: Male
  Weight: 88.44 kg

DRUGS (3)
  1. OPANA [Suspect]
     Active Substance: OXYMORPHONE HYDROCHLORIDE
     Indication: CROHN^S DISEASE
     Dosage: UNK UNKNOWN, UNKNOWN
     Route: 065
  2. HUMIRA [Suspect]
     Active Substance: ADALIMUMAB
     Indication: CROHN^S DISEASE
     Dosage: 40 MG, 1 IN 2 WK
     Route: 058
     Dates: start: 201808
  3. PREDNISONE. [Concomitant]
     Active Substance: PREDNISONE
     Indication: CROHN^S DISEASE
     Dosage: UNK UNKNOWN, UNKNOWN
     Route: 065

REACTIONS (11)
  - Anxiety [Recovering/Resolving]
  - Gastrointestinal inflammation [Recovering/Resolving]
  - Urinary retention [Recovered/Resolved]
  - Off label use [Unknown]
  - Weight decreased [Not Recovered/Not Resolved]
  - Renal failure [Recovered/Resolved]
  - Dehydration [Recovered/Resolved]
  - Dyspepsia [Unknown]
  - Crohn^s disease [Unknown]
  - Gastrointestinal mucosa hyperaemia [Recovering/Resolving]
  - Vomiting [Recovering/Resolving]

NARRATIVE: CASE EVENT DATE: 201907
